FAERS Safety Report 8206351-7 (Version None)
Quarter: 2012Q1

REPORT INFORMATION
  Report Type: 
  Country: None (occurrence: None)
  Receive Date: 20120313
  Receipt Date: 20120307
  Transmission Date: 20120608
  Serious: Yes (Death, Hospitalization, Other)
  Sender: FDA-Public Use
  Company Number: PHEH2008US10678

PATIENT
  Sex: Male

DRUGS (10)
  1. SERTRALINE HYDROCHLORIDE [Concomitant]
     Dosage: 100 MG, QD
     Route: 048
  2. PROCHLORPERAZINE MALEATE [Concomitant]
     Dosage: 10 MG, PRN
     Route: 048
  3. OXYCODONE HCL [Concomitant]
  4. ATROPINE [Concomitant]
     Route: 048
  5. PRILOSEC [Concomitant]
  6. COUMADIN [Suspect]
  7. REVLIMID [Concomitant]
     Dosage: 15 MG, DAILY FOR 21 DAYS
     Route: 048
  8. PROPRANOLOL [Concomitant]
     Dosage: 10 MG, QD
     Route: 048
  9. ZOMETA [Suspect]
     Indication: MULTIPLE MYELOMA
     Route: 042
  10. LOVENOX [Concomitant]

REACTIONS (83)
  - DEATH [None]
  - BARRETT'S OESOPHAGUS [None]
  - HYPOKALAEMIA [None]
  - THROMBOCYTOPENIA [None]
  - EXPOSED BONE IN JAW [None]
  - EMOTIONAL DISTRESS [None]
  - OVERDOSE [None]
  - FAILURE TO THRIVE [None]
  - LUNG NEOPLASM [None]
  - HERPES ZOSTER [None]
  - ROTATOR CUFF SYNDROME [None]
  - CONFUSIONAL STATE [None]
  - OEDEMA PERIPHERAL [None]
  - PAIN IN EXTREMITY [None]
  - APLASTIC ANAEMIA [None]
  - METABOLIC ENCEPHALOPATHY [None]
  - RENAL FAILURE [None]
  - OSTEONECROSIS OF JAW [None]
  - CEREBRAL ATROPHY [None]
  - RENAL CYST [None]
  - FALL [None]
  - COUGH [None]
  - BRONCHITIS [None]
  - GASTRITIS [None]
  - COAGULOPATHY [None]
  - MASTICATION DISORDER [None]
  - ANXIETY [None]
  - LIFE EXPECTANCY SHORTENED [None]
  - DENTAL CARIES [None]
  - PERICARDIAL EFFUSION [None]
  - MITRAL VALVE CALCIFICATION [None]
  - DECREASED APPETITE [None]
  - ASTHENIA [None]
  - UPPER RESPIRATORY TRACT INFECTION [None]
  - QUALITY OF LIFE DECREASED [None]
  - SPINAL OSTEOARTHRITIS [None]
  - NASAL TURBINATE HYPERTROPHY [None]
  - CONJUNCTIVAL HAEMORRHAGE [None]
  - DYSPHAGIA [None]
  - DEPRESSION [None]
  - INSOMNIA [None]
  - DYSPEPSIA [None]
  - OESOPHAGITIS [None]
  - MUCOSAL INFLAMMATION [None]
  - HYPONATRAEMIA [None]
  - PAIN [None]
  - DEFORMITY [None]
  - PHYSICAL DISABILITY [None]
  - DEEP VEIN THROMBOSIS [None]
  - METASTASES TO BONE [None]
  - GOITRE [None]
  - CLAVICLE FRACTURE [None]
  - CARDIAC FAILURE CONGESTIVE [None]
  - PULMONARY EMBOLISM [None]
  - URINARY INCONTINENCE [None]
  - DYSPNOEA [None]
  - BLISTER [None]
  - PRURITUS [None]
  - ABDOMINAL PAIN UPPER [None]
  - VITAMIN B COMPLEX DEFICIENCY [None]
  - HAEMATOCHEZIA [None]
  - ANHEDONIA [None]
  - GINGIVITIS [None]
  - GINGIVAL BLEEDING [None]
  - CEREBRAL DISORDER [None]
  - GASTROOESOPHAGEAL REFLUX DISEASE [None]
  - ECCHYMOSIS [None]
  - COLONIC POLYP [None]
  - OSTEOMA [None]
  - WEIGHT DECREASED [None]
  - PYREXIA [None]
  - RECTAL HAEMORRHAGE [None]
  - DISCOMFORT [None]
  - INJURY [None]
  - ACTIVITIES OF DAILY LIVING IMPAIRED [None]
  - HAEMORRHOIDS [None]
  - INGUINAL HERNIA [None]
  - COLON CANCER [None]
  - MENTAL STATUS CHANGES [None]
  - DILATATION ATRIAL [None]
  - BACK PAIN [None]
  - BLOOD PRESSURE INCREASED [None]
  - CONSTIPATION [None]
